FAERS Safety Report 17410911 (Version 4)
Quarter: 2020Q1

REPORT INFORMATION
  Report Type: Spontaneous
  Country: BE (occurrence: BE)
  Receive Date: 20200212
  Receipt Date: 20200225
  Transmission Date: 20200409
  Serious: Yes (Hospitalization, Other)
  Sender: FDA-Public Use
  Company Number: BE-ARRAY-2020-07340

PATIENT

DRUGS (10)
  1. CETUXIMAB. [Suspect]
     Active Substance: CETUXIMAB
     Indication: COLORECTAL CANCER METASTATIC
     Dosage: UNK
     Route: 042
     Dates: start: 20191119
  2. DOSULEPIN HYDROCHLORIDE [Concomitant]
     Active Substance: DOTHIEPIN HYDROCHLORIDE
     Indication: DEPRESSION
     Dosage: 25 MG, QD
     Route: 048
  3. BRAFTOVI [Suspect]
     Active Substance: ENCORAFENIB
     Indication: COLORECTAL CANCER METASTATIC
     Dosage: 300 MG, QD
     Route: 048
     Dates: start: 20191119, end: 20200203
  4. LORAZEPAM. [Concomitant]
     Active Substance: LORAZEPAM
     Indication: DEPRESSION
     Dosage: 2.5 MG, QD
     Route: 048
  5. TRAMADOL. [Concomitant]
     Active Substance: TRAMADOL
     Indication: PAIN
     Dosage: 50 MG, TID
     Route: 065
  6. MEKTOVI [Suspect]
     Active Substance: BINIMETINIB
     Indication: COLORECTAL CANCER METASTATIC
     Dosage: 90 MG, QD
     Route: 048
     Dates: start: 20191119, end: 20200203
  7. ALPRAZOLAM. [Concomitant]
     Active Substance: ALPRAZOLAM
     Indication: DEPRESSION
     Dosage: 0.5 MG, TID
     Route: 048
  8. PANTOPRAZOLE [Concomitant]
     Active Substance: PANTOPRAZOLE
     Indication: PROPHYLAXIS AGAINST GASTROINTESTINAL ULCER
     Dosage: 20 MG, QD
     Route: 048
  9. PARACETAMOL [Concomitant]
     Active Substance: ACETAMINOPHEN
     Indication: PAIN
     Dosage: 1000 MG, PRN
     Route: 065
  10. FLUOXETINE [Concomitant]
     Active Substance: FLUOXETINE HYDROCHLORIDE
     Indication: DEPRESSION
     Dosage: 20 MG, QD
     Route: 048

REACTIONS (5)
  - Hydronephrosis [Recovering/Resolving]
  - Product use in unapproved indication [Unknown]
  - Pyrexia [Recovered/Resolved]
  - Pyelonephritis [Recovering/Resolving]
  - Myalgia [Recovered/Resolved]

NARRATIVE: CASE EVENT DATE: 20191119
